FAERS Safety Report 11109797 (Version 1)
Quarter: 2015Q2

REPORT INFORMATION
  Report Type: Spontaneous
  Country: US (occurrence: None)
  Receive Date: 20150512
  Receipt Date: 20150512
  Transmission Date: 20150821
  Serious: Yes (Hospitalization)
  Sender: FDA-Public Use
  Company Number: None

PATIENT
  Age: 69 Year
  Sex: Male

DRUGS (9)
  1. CRESTOR [Concomitant]
     Active Substance: ROSUVASTATIN CALCIUM
  2. PENTOXIFYLLINE. [Concomitant]
     Active Substance: PENTOXIFYLLINE
  3. ENALAPRIL [Concomitant]
     Active Substance: ENALAPRIL
  4. NOVOLOG [Concomitant]
     Active Substance: INSULIN ASPART
  5. NIFEDIPINE. [Concomitant]
     Active Substance: NIFEDIPINE
  6. AVAPRO [Concomitant]
     Active Substance: IRBESARTAN
  7. ASPIRIN. [Concomitant]
     Active Substance: ASPIRIN
  8. HUMIRA [Suspect]
     Active Substance: ADALIMUMAB
     Indication: PSORIASIS
     Dosage: 40 MG (1 PEN) EVERY OTHER WEEK SUBCUTANEOUS
     Route: 058
     Dates: start: 201210
  9. CARVEDILOL. [Concomitant]
     Active Substance: CARVEDILOL

REACTIONS (1)
  - Myocardial infarction [None]
